FAERS Safety Report 7996056-X (Version None)
Quarter: 2011Q4

REPORT INFORMATION
  Report Type: 
  Country: None (occurrence: None)
  Receive Date: 20111220
  Receipt Date: 20111208
  Transmission Date: 20120403
  Serious: Yes (Hospitalization, Other)
  Sender: FDA-Public Use
  Company Number: PHHY2010CA19398

PATIENT
  Sex: Male

DRUGS (8)
  1. BISOPROLOL FUMARATE [Concomitant]
     Dosage: 5 MG
  2. RYTHMOL [Concomitant]
     Dosage: 300 MG, BID
  3. RIVASTIGMINE [Suspect]
     Indication: DEMENTIA
     Dosage: 9.5 MG (10 CM PATCH/ DAY)
     Route: 062
     Dates: end: 20090616
  4. FOSINOPRIL SODIUM [Concomitant]
     Dosage: 20 MG, QD
  5. COUMADIN [Concomitant]
  6. CRESTOR [Concomitant]
  7. ATASOL [Concomitant]
  8. OXAZEPAM [Concomitant]

REACTIONS (5)
  - HYPOTENSION [None]
  - BRADYARRHYTHMIA [None]
  - DIZZINESS [None]
  - SYNCOPE [None]
  - LOSS OF CONSCIOUSNESS [None]
